FAERS Safety Report 4731437-9 (Version None)
Quarter: 2005Q3

REPORT INFORMATION
  Report Type: 
  Country: None (occurrence: None)
  Receive Date: 20050802
  Receipt Date: 20050727
  Transmission Date: 20060218
  Serious: Yes (Hospitalization)
  Sender: FDA-Public Use
  Company Number: 200512552FR

PATIENT
  Age: 75 Year
  Sex: Male
  Weight: 68 kg

DRUGS (11)
  1. DAONIL [Suspect]
     Indication: DIABETES MELLITUS NON-INSULIN-DEPENDENT
     Route: 048
     Dates: end: 20050123
  2. HEMI-DAONIL [Suspect]
     Indication: DIABETES MELLITUS NON-INSULIN-DEPENDENT
     Route: 048
     Dates: end: 20050123
  3. FUROSEMIDE [Suspect]
     Indication: ESSENTIAL HYPERTENSION
     Route: 048
     Dates: end: 20050123
  4. ZOLOFT [Suspect]
     Indication: DEPRESSION
     Route: 048
     Dates: end: 20050123
  5. ZANIDIP [Suspect]
     Indication: MYOCARDIAL ISCHAEMIA
     Route: 048
     Dates: end: 20050123
  6. TAHOR [Suspect]
     Indication: HYPERCHOLESTEROLAEMIA
     Route: 048
  7. TRINIPATCH [Concomitant]
     Route: 062
     Dates: end: 20050204
  8. KARDEGIC [Concomitant]
     Route: 048
  9. COZAAR [Concomitant]
     Route: 048
  10. MOPRAL [Concomitant]
     Route: 048
     Dates: end: 20050126
  11. CORBIONAX [Concomitant]
     Route: 048

REACTIONS (9)
  - CEREBRAL ISCHAEMIA [None]
  - CEREBROVASCULAR ACCIDENT [None]
  - CONDITION AGGRAVATED [None]
  - CONFUSIONAL STATE [None]
  - DISORIENTATION [None]
  - DISTURBANCE IN ATTENTION [None]
  - HYPOGLYCAEMIA [None]
  - SOMNOLENCE [None]
  - VASCULAR DEMENTIA [None]
